FAERS Safety Report 13839705 (Version 1)
Quarter: 2017Q3

REPORT INFORMATION
  Report Type: Spontaneous
  Country: US (occurrence: US)
  Receive Date: 20170805
  Receipt Date: 20170805
  Transmission Date: 20171127
  Serious: No
  Sender: FDA-Public Use
  Company Number: None

PATIENT
  Age: 40 Year
  Sex: Male

DRUGS (5)
  1. PNEUMOCOCCAL VACCINE POLYVALENT [Concomitant]
     Active Substance: PNEUMOCOCCAL VACCINE POLYVALENT
  2. AMLODIPINE [Concomitant]
     Active Substance: AMLODIPINE BESYLATE
  3. INSULIN REG/NPH 70/30 [Suspect]
     Active Substance: INSULIN HUMAN
     Indication: HYPERGLYCAEMIA
     Dosage: DOSE - 18 UNITS?DATES OF USE - CONTINUED
     Route: 058
  4. INSULIN ASPART [Suspect]
     Active Substance: INSULIN ASPART
     Dosage: DOSE - 6 UNITS?FREQUENCY - WITH MEALS AND
     Route: 058
  5. HEPARIN [Concomitant]
     Active Substance: HEPARIN SODIUM

REACTIONS (5)
  - Hyperglycaemia [None]
  - Diabetic ketoacidosis [None]
  - Vomiting [None]
  - Nausea [None]
  - Abdominal pain [None]

NARRATIVE: CASE EVENT DATE: 20161219
